FAERS Safety Report 7911755-3 (Version None)
Quarter: 2011Q4

REPORT INFORMATION
  Report Type: 
  Country: None (occurrence: None)
  Receive Date: 20111114
  Receipt Date: 20111114
  Transmission Date: 20120403
  Serious: Yes (Hospitalization)
  Sender: FDA-Public Use
  Company Number: None

PATIENT
  Age: 48 Year
  Sex: Male

DRUGS (15)
  1. LISINOPRIL AND HYDROCHLOROTHIAZIDE [Suspect]
     Indication: HYPERTENSION
     Dosage: 20/25 ONE TABLET
     Route: 048
     Dates: start: 20110317, end: 20110503
  2. ALBUTEROL INHALER [Concomitant]
  3. VITAMIN D [Concomitant]
  4. DEPAKOTE [Concomitant]
  5. AMANTADINE HCL [Concomitant]
  6. ACETAMINOPHEN [Concomitant]
  7. ASPIRIN [Concomitant]
  8. BENZTROPINE MESYLATE [Suspect]
  9. OLANZAPINE [Concomitant]
  10. MULTI-VITAMIN [Concomitant]
  11. OMEPRAZOLE [Concomitant]
     Route: 048
  12. DICLOFENAC SODIUM [Concomitant]
  13. LITHIUM CARBONATE [Suspect]
     Indication: BIPOLAR DISORDER
     Dosage: 900 MG
     Route: 048
  14. FLUTICASONE PROPIONATE [Concomitant]
     Route: 045
  15. LORAZEPAM [Concomitant]

REACTIONS (7)
  - ASTHENIA [None]
  - GAIT DISTURBANCE [None]
  - DRUG INTERACTION [None]
  - MUSCULAR WEAKNESS [None]
  - TREMOR [None]
  - ANTIPSYCHOTIC DRUG LEVEL INCREASED [None]
  - SOMNOLENCE [None]
